FAERS Safety Report 8047233-3 (Version None)
Quarter: 2012Q1

REPORT INFORMATION
  Report Type: 
  Country: None (occurrence: None)
  Receive Date: 20120116
  Receipt Date: 20120105
  Transmission Date: 20120608
  Serious: Yes (Other)
  Sender: FDA-Public Use
  Company Number: US-UCBSA-048913

PATIENT
  Age: 22 Year
  Sex: Female
  Weight: 78.5 kg

DRUGS (2)
  1. CIMZIA [Suspect]
     Indication: CROHN'S DISEASE
     Route: 058
     Dates: start: 20110501
  2. LEVONORGESTREL AND ETHINYL ESTRADIOL [Concomitant]
     Indication: CONTRACEPTION
     Dosage: START DATE: MANY YEARS.
     Route: 048

REACTIONS (4)
  - ASTHMA [None]
  - WEIGHT DECREASED [None]
  - ALOPECIA [None]
  - SEASONAL ALLERGY [None]
